FAERS Safety Report 10611699 (Version 4)
Quarter: 2015Q1

REPORT INFORMATION
  Report Type: Report from Study
  Country: CH (occurrence: CH)
  Receive Date: 20141126
  Receipt Date: 20150316
  Transmission Date: 20150720
  Serious: Yes (Death, Life-Threatening, Hospitalization, Other)
  Sender: FDA-Public Use
  Company Number: CH-ABBVIE-14P-151-1312870-00

PATIENT
  Age: 79 Year
  Sex: Female

DRUGS (6)
  1. DUODOPA [Suspect]
     Active Substance: CARBIDOPA\LEVODOPA
     Dosage: MD:1 ML/KR DAY: 3. 6 ML/KR NIGHT: 2,3 ED 1.5 ML
     Route: 050
     Dates: start: 20130404
  2. DUODOPA [Suspect]
     Active Substance: CARBIDOPA\LEVODOPA
     Indication: PARKINSON^S DISEASE
     Dosage: CD DAY: 3.6ML/H CD NIGHT 2.4 ML/H ED 1.5ML
     Route: 050
     Dates: start: 20130519
  3. N-ACETYLCYSTEINE [Concomitant]
     Active Substance: ACETYLCYSTEINE
     Indication: HEPATITIS
     Route: 042
     Dates: start: 20141217, end: 20141219
  4. ERYTHROPOIETIN [Concomitant]
     Active Substance: ERYTHROPOIETIN
     Indication: PRODUCT USED FOR UNKNOWN INDICATION
     Route: 065
  5. VITAMIN B12 [Concomitant]
     Active Substance: CYANOCOBALAMIN
     Indication: VITAMIN B12 DEFICIENCY
     Route: 058
     Dates: start: 20140506, end: 20141117
  6. DUODOPA [Suspect]
     Active Substance: CARBIDOPA\LEVODOPA
     Dosage: MORING DOSE:3ML DAY 3.7 ML/H NIGHT 2.5 ML/H EXTRA DOSE 2 ML
     Route: 050
     Dates: start: 201411, end: 20141223

REACTIONS (21)
  - Sepsis [Fatal]
  - Electrolyte imbalance [Fatal]
  - Dyspepsia [Unknown]
  - Gait disturbance [Unknown]
  - Terminal state [Unknown]
  - Polyneuropathy [Unknown]
  - Parkinson^s disease [Recovering/Resolving]
  - Malabsorption [Unknown]
  - Osteoarthritis [Not Recovered/Not Resolved]
  - Hepatic necrosis [Fatal]
  - Mobility decreased [Not Recovered/Not Resolved]
  - Respiratory tract infection bacterial [Fatal]
  - Multi-organ failure [Unknown]
  - Renal failure [Not Recovered/Not Resolved]
  - Septic shock [Fatal]
  - Haemodynamic instability [Fatal]
  - Ischaemic hepatitis [Fatal]
  - Unevaluable event [Unknown]
  - Drug effect decreased [Unknown]
  - Bronchopulmonary aspergillosis [Fatal]
  - Pain [Unknown]

NARRATIVE: CASE EVENT DATE: 20140505
